FAERS Safety Report 16914158 (Version 4)
Quarter: 2019Q4

REPORT INFORMATION
  Report Type: Report from Study
  Country: DE (occurrence: DE)
  Receive Date: 20191014
  Receipt Date: 20191031
  Transmission Date: 20200122
  Serious: Yes (Hospitalization)
  Sender: FDA-Public Use
  Company Number: DE-EISAI MEDICAL RESEARCH-EC-2019-063413

PATIENT
  Age: 67 Year
  Sex: Male
  Weight: 144 kg

DRUGS (12)
  1. BISOHEXAL [Concomitant]
     Active Substance: BISOPROLOL FUMARATE
  2. PANTOZOLE [Concomitant]
     Active Substance: PANTOPRAZOLE SODIUM
  3. BONDIOL [Concomitant]
     Active Substance: ALFACALCIDOL
  4. ZOPICLON [Concomitant]
     Active Substance: ZOPICLONE
  5. MARCUMAR [Concomitant]
     Active Substance: PHENPROCOUMON
  6. SULPIRID [Concomitant]
     Active Substance: SULPIRIDE
  7. CANDESARTAN. [Concomitant]
     Active Substance: CANDESARTAN
  8. LENVATINIB [Suspect]
     Active Substance: LENVATINIB
     Indication: THYROID CANCER
     Route: 048
     Dates: start: 20190312, end: 20191017
  9. ALPRAZOLAM. [Concomitant]
     Active Substance: ALPRAZOLAM
  10. DIGITOXIN [Concomitant]
     Active Substance: DIGITOXIN
  11. L-THYROX [Concomitant]
     Active Substance: LEVOTHYROXINE SODIUM
  12. CALCIUM [Concomitant]
     Active Substance: CALCIUM

REACTIONS (1)
  - Pneumonia [Recovered/Resolved]

NARRATIVE: CASE EVENT DATE: 20191004
